FAERS Safety Report 8397792-6 (Version None)
Quarter: 2012Q2

REPORT INFORMATION
  Report Type: 
  Country: None (occurrence: None)
  Receive Date: 20120531
  Receipt Date: 20110414
  Transmission Date: 20120825
  Serious: No
  Sender: FDA-Public Use
  Company Number: US-NOVEN-11US002294

PATIENT
  Age: 11 Year
  Sex: Male
  Weight: 31.746 kg

DRUGS (2)
  1. NONE [Concomitant]
  2. DAYTRANA [Suspect]
     Indication: ATTENTION DEFICIT/HYPERACTIVITY DISORDER
     Dosage: 20 MG, UNK
     Route: 062
     Dates: start: 20110414, end: 20110414

REACTIONS (6)
  - EXCESSIVE EYE BLINKING [None]
  - MUSCLE SPASMS [None]
  - FATIGUE [None]
  - DRUG INTOLERANCE [None]
  - CONFUSIONAL STATE [None]
  - EYE MOVEMENT DISORDER [None]
